FAERS Safety Report 4319440-4 (Version None)
Quarter: 2004Q1

REPORT INFORMATION
  Report Type: 
  Country: None (occurrence: None)
  Receive Date: 20040318
  Receipt Date: 20040318
  Transmission Date: 20041129
  Serious: Yes (Other)
  Sender: FDA-Public Use
  Company Number: None

PATIENT
  Age: 50 Year
  Sex: Female
  Weight: 72.5755 kg

DRUGS (1)
  1. BETASERON [Suspect]
     Indication: PROGRESSIVE MULTIPLE SCLEROSIS
     Dosage: 1 EVERY OTHE SUBCUTANEOUS
     Route: 058
     Dates: start: 20030304, end: 20040312

REACTIONS (3)
  - CONTUSION [None]
  - HAEMORRHAGE [None]
  - MEDICAL DEVICE COMPLICATION [None]
